FAERS Safety Report 6991479-X (Version None)
Quarter: 2010Q3

REPORT INFORMATION
  Report Type: 
  Country: None (occurrence: None)
  Receive Date: 20100916
  Receipt Date: 20090826
  Transmission Date: 20110219
  Serious: No
  Sender: FDA-Public Use
  Company Number: US-WYE-H10744409

PATIENT
  Sex: Female

DRUGS (8)
  1. PRISTIQ [Suspect]
     Indication: DEPRESSION
     Route: 048
     Dates: start: 20081201
  2. PRISTIQ [Suspect]
     Route: 048
  3. ZOCOR [Concomitant]
  4. TRIAMTERENE [Concomitant]
  5. OLMESARTAN MEDOXOMIL [Concomitant]
  6. MOBIC [Concomitant]
  7. AMITRIPTYLINE HCL [Concomitant]
  8. AMLODIPINE BESYLATE [Concomitant]

REACTIONS (6)
  - ANXIETY [None]
  - CLUMSINESS [None]
  - CONSTIPATION [None]
  - DIZZINESS [None]
  - DRY MOUTH [None]
  - FATIGUE [None]
